FAERS Safety Report 4612384-X (Version None)
Quarter: 2005Q2

REPORT INFORMATION
  Report Type: 
  Country: None (occurrence: None)
  Receive Date: 20050308
  Receipt Date: 20050118
  Transmission Date: 20051028
  Serious: Yes (Other)
  Sender: FDA-Public Use
  Company Number: 2004UW23487

PATIENT
  Age: 61 Year
  Sex: Male
  Weight: 90.718 kg

DRUGS (8)
  1. CRESTOR [Suspect]
     Indication: BLOOD CHOLESTEROL INCREASED
     Dosage: 5 MG PO
     Route: 048
  2. CRESTOR [Suspect]
     Indication: BLOOD CHOLESTEROL INCREASED
     Dosage: 10 MG PO
     Route: 048
     Dates: start: 20041001
  3. CRESTOR [Suspect]
     Indication: BLOOD CHOLESTEROL INCREASED
     Dosage: 5 MG PO
     Route: 048
     Dates: start: 20041115
  4. PRIMIDONE [Concomitant]
  5. ASPIRIN [Concomitant]
  6. MOTRIN [Concomitant]
  7. RAPTIVA [Concomitant]
  8. ENBREL [Concomitant]

REACTIONS (4)
  - ASTHENIA [None]
  - DYSPEPSIA [None]
  - FLUSHING [None]
  - HEADACHE [None]
